APPROVED DRUG PRODUCT: ENTACAPONE
Active Ingredient: ENTACAPONE
Strength: 200MG
Dosage Form/Route: TABLET;ORAL
Application: A078941 | Product #001 | TE Code: AB
Applicant: WOCKHARDT BIO AG
Approved: Aug 16, 2012 | RLD: No | RS: No | Type: RX